FAERS Safety Report 25355350 (Version 1)
Quarter: 2025Q2

REPORT INFORMATION
  Report Type: Spontaneous
  Country: US (occurrence: US)
  Receive Date: 20250524
  Receipt Date: 20250524
  Transmission Date: 20250716
  Serious: No
  Sender: TEVA
  Company Number: US-TEVA-VS-3329685

PATIENT
  Sex: Female

DRUGS (1)
  1. VESTURA [Suspect]
     Active Substance: DROSPIRENONE\ETHINYL ESTRADIOL
     Indication: Contraception
     Route: 065

REACTIONS (2)
  - Menstruation delayed [Unknown]
  - Product packaging issue [Unknown]
